FAERS Safety Report 8554225-4 (Version None)
Quarter: 2012Q3

REPORT INFORMATION
  Report Type: 
  Country: None (occurrence: None)
  Receive Date: 20120731
  Receipt Date: 20120719
  Transmission Date: 20120928
  Serious: Yes (Hospitalization, Disabling, Other)
  Sender: FDA-Public Use
  Company Number: US-009507513-1007USA01784

PATIENT

DRUGS (10)
  1. FOSAMAX [Suspect]
     Indication: OSTEOPENIA
     Dosage: 70 MG, QW
     Route: 048
     Dates: start: 20001001, end: 20080301
  2. VITAMIN D (UNSPECIFIED) [Concomitant]
     Indication: OSTEOPOROSIS
     Dosage: 1000 U, QD
     Dates: start: 19970101
  3. CALCIUM (UNSPECIFIED) [Concomitant]
     Indication: OSTEOPOROSIS
     Dosage: 1500 MG, QD
     Dates: start: 19970101
  4. AMBIEN [Concomitant]
     Indication: SLEEP DISORDER
     Dates: start: 19990101
  5. FOSAMAX [Suspect]
     Indication: OSTEOPOROSIS
     Dosage: 10 MG, QD
     Route: 048
     Dates: start: 19970423, end: 20000901
  6. IMITREX [Concomitant]
     Indication: HEADACHE
     Dates: start: 19970101
  7. FOSAMAX [Suspect]
  8. FOSAMAX [Suspect]
     Dosage: 70 MG, UNK
     Route: 048
     Dates: start: 20080429
  9. FOSAMAX [Suspect]
     Dosage: 70 MG, UNK
     Route: 048
     Dates: start: 20080401, end: 20100101
  10. FOSAMAX [Suspect]

REACTIONS (43)
  - LOW TURNOVER OSTEOPATHY [None]
  - SPINAL COMPRESSION FRACTURE [None]
  - DEAFNESS [None]
  - CONTUSION [None]
  - OSTEOARTHRITIS [None]
  - WEIGHT INCREASED [None]
  - TEMPERATURE INTOLERANCE [None]
  - NAUSEA [None]
  - ONYCHOCLASIS [None]
  - ACTINIC KERATOSIS [None]
  - UPPER RESPIRATORY TRACT INFECTION [None]
  - LIGAMENT SPRAIN [None]
  - STRESS FRACTURE [None]
  - INSOMNIA [None]
  - MIGRAINE [None]
  - FLUID RETENTION [None]
  - HAIR TEXTURE ABNORMAL [None]
  - ALOPECIA [None]
  - FALL [None]
  - MENORRHAGIA [None]
  - ANAEMIA [None]
  - TINNITUS [None]
  - FATIGUE [None]
  - DEVICE FAILURE [None]
  - COSTOCHONDRITIS [None]
  - AMNESIA [None]
  - VISION BLURRED [None]
  - DYSPNOEA [None]
  - ASTHENIA [None]
  - FEMUR FRACTURE [None]
  - FIBULA FRACTURE [None]
  - ACNE CYSTIC [None]
  - DRUG INTOLERANCE [None]
  - DIZZINESS [None]
  - OSTEOPOROSIS [None]
  - DISTURBANCE IN ATTENTION [None]
  - PREMENSTRUAL SYNDROME [None]
  - ARTHRALGIA [None]
  - DIARRHOEA [None]
  - DEPRESSION [None]
  - IRRITABILITY [None]
  - DRY SKIN [None]
  - LIBIDO DECREASED [None]
